APPROVED DRUG PRODUCT: METHYLERGONOVINE MALEATE
Active Ingredient: METHYLERGONOVINE MALEATE
Strength: 0.2MG
Dosage Form/Route: TABLET;ORAL
Application: A091577 | Product #001 | TE Code: AB
Applicant: CHARTWELL RX SCIENCES LLC
Approved: May 2, 2011 | RLD: No | RS: Yes | Type: RX